FAERS Safety Report 7675583-9 (Version None)
Quarter: 2011Q3

REPORT INFORMATION
  Report Type: 
  Country: None (occurrence: None)
  Receive Date: 20110810
  Receipt Date: 20110801
  Transmission Date: 20111222
  Serious: Yes (Congenital Anomaly)
  Sender: FDA-Public Use
  Company Number: BR-US-EMD SERONO, INC.-7074880

PATIENT

DRUGS (1)
  1. REBIF [Suspect]
     Route: 064

REACTIONS (3)
  - CONGENITAL HYPOTHYROIDISM [None]
  - TRISOMY 21 [None]
  - MATERNAL EXPOSURE DURING PREGNANCY [None]
